FAERS Safety Report 14480452 (Version 1)
Quarter: 2018Q1

REPORT INFORMATION
  Report Type: Report from Study
  Country: US (occurrence: US)
  Receive Date: 20180202
  Receipt Date: 20180202
  Transmission Date: 20180509
  Serious: Yes (Other)
  Sender: FDA-Public Use
  Company Number: US-SA-2018SA019799

PATIENT
  Age: 73 Year
  Sex: Male
  Weight: 75.3 kg

DRUGS (5)
  1. HUMIRA [Interacting]
     Active Substance: ADALIMUMAB
     Indication: RHEUMATOID ARTHRITIS
     Dosage: SOLUTION FOR INJECTION IN PRE-FILLED PEN
     Route: 058
     Dates: start: 2002, end: 2002
  2. AMBIEN [Suspect]
     Active Substance: ZOLPIDEM TARTRATE
     Route: 048
     Dates: start: 2013, end: 2013
  3. HUMIRA [Interacting]
     Active Substance: ADALIMUMAB
     Indication: RHEUMATOID ARTHRITIS
     Dosage: SOLUTION FOR INJECTION IN PRE-FILLED PEN
     Route: 058
     Dates: start: 2013, end: 2013
  4. HUMIRA [Interacting]
     Active Substance: ADALIMUMAB
     Indication: RHEUMATOID ARTHRITIS
     Route: 058
     Dates: start: 201609, end: 201609
  5. ATIVAN [Interacting]
     Active Substance: LORAZEPAM
     Route: 065
     Dates: start: 2013, end: 2013

REACTIONS (9)
  - Colon cancer stage IV [Not Recovered/Not Resolved]
  - Joint range of motion decreased [Not Recovered/Not Resolved]
  - Lung neoplasm malignant [Recovered/Resolved]
  - Drug interaction [Unknown]
  - Dementia Alzheimer^s type [Recovering/Resolving]
  - Injection site pain [Not Recovered/Not Resolved]
  - Anaemia [Recovered/Resolved]
  - Insomnia [Recovering/Resolving]
  - Hallucination [Recovered/Resolved]

NARRATIVE: CASE EVENT DATE: 2007
